FAERS Safety Report 13994106 (Version 1)
Quarter: 2017Q3

REPORT INFORMATION
  Report Type: Spontaneous
  Country: US (occurrence: US)
  Receive Date: 20170920
  Receipt Date: 20170920
  Transmission Date: 20171128
  Serious: Yes (Other)
  Sender: FDA-Public Use
  Company Number: US-TEIKOKU PHARMA USA-TPU2017-00494

PATIENT
  Age: 76 Year
  Sex: Female
  Weight: 57.66 kg

DRUGS (6)
  1. LIDOCAINE PATCH [Suspect]
     Active Substance: LIDOCAINE
     Indication: LUMBAR SPINAL STENOSIS
     Route: 061
     Dates: start: 2014
  2. XANAX [Concomitant]
     Active Substance: ALPRAZOLAM
     Dosage: ONE PILL AT NIGHT
  3. SIMVASTATIN. [Concomitant]
     Active Substance: SIMVASTATIN
     Indication: BLOOD CHOLESTEROL
     Dates: end: 201707
  4. DHEA VITAMINS [Concomitant]
  5. NIFEDIPINE. [Concomitant]
     Active Substance: NIFEDIPINE
     Indication: RAYNAUD^S PHENOMENON
     Dates: start: 201707
  6. PROLIA [Concomitant]
     Active Substance: DENOSUMAB
     Indication: OSTEOPOROSIS

REACTIONS (5)
  - Raynaud^s phenomenon [Unknown]
  - Concussion [Unknown]
  - Fall [Unknown]
  - Weight decreased [Unknown]
  - Parkinson^s disease [Unknown]

NARRATIVE: CASE EVENT DATE: 201707
